FAERS Safety Report 15139209 (Version 3)
Quarter: 2018Q4

REPORT INFORMATION
  Report Type: Spontaneous
  Country: US (occurrence: US)
  Receive Date: 20180713
  Receipt Date: 20181022
  Transmission Date: 20190204
  Serious: No
  Sender: FDA-Public Use
  Company Number: US-PFIZER INC-2018254726

PATIENT
  Age: 87 Year
  Sex: Female

DRUGS (8)
  1. LYRICA [Suspect]
     Active Substance: PREGABALIN
     Dosage: 150 MG, DAILY (TWO PILLS A DAY)
     Dates: start: 2018, end: 2018
  2. LYRICA [Suspect]
     Active Substance: PREGABALIN
     Indication: LUMBAR SPINAL STENOSIS
     Dosage: 100 MG, DAILY(INCREASED TO 2 CAPSULES (100MG) TAKEN BY MOUTH DAILY FOR THE NEXT TWO DAYS)
     Route: 048
     Dates: start: 2018, end: 2018
  3. LYRICA [Suspect]
     Active Substance: PREGABALIN
     Dosage: 75 MG, 1X/DAY
     Dates: start: 2018
  4. ADVIL [Concomitant]
     Active Substance: IBUPROFEN
     Indication: SCIATICA
     Dosage: UNK
  5. LYRICA [Suspect]
     Active Substance: PREGABALIN
     Indication: SCIATICA
     Dosage: 50 MG, DAILY(1 CAPSULE (50MG) TAKEN BY MOUTH DAILY FOR FIRST 2 DAYS)
     Route: 048
     Dates: start: 20180704, end: 2018
  6. LYRICA [Suspect]
     Active Substance: PREGABALIN
     Indication: OSTEOPOROSIS
     Dosage: 150 MG, DAILY(3 CAPSULES (150MG) TAKEN BY MOUTH DAILY)(150 MG/DAY)
     Route: 048
     Dates: start: 2018, end: 2018
  7. ADVIL [Concomitant]
     Active Substance: IBUPROFEN
     Indication: OSTEOPOROSIS
  8. ADVIL [Concomitant]
     Active Substance: IBUPROFEN
     Indication: LUMBAR SPINAL STENOSIS

REACTIONS (4)
  - Peripheral swelling [Unknown]
  - Pain [Unknown]
  - Drug ineffective [Unknown]
  - Intentional product use issue [Unknown]

NARRATIVE: CASE EVENT DATE: 2018
